FAERS Safety Report 8057393-6 (Version None)
Quarter: 2012Q1

REPORT INFORMATION
  Report Type: 
  Country: None (occurrence: None)
  Receive Date: 20120119
  Receipt Date: 20120112
  Transmission Date: 20120608
  Serious: Yes (Hospitalization)
  Sender: FDA-Public Use
  Company Number: JP-ASTRAZENECA-2011SE75037

PATIENT
  Age: 82 Year
  Sex: Female

DRUGS (13)
  1. TOFRANIL [Concomitant]
     Route: 065
  2. AMOBAN [Concomitant]
     Dosage: 1/2 TABLET BEFORE SLEEPING.
     Route: 065
  3. ETIZOLAM [Concomitant]
     Dosage: 0.5 AS REQUIRED.
     Route: 065
  4. LIVALO [Concomitant]
     Route: 065
  5. ALFAROL [Concomitant]
     Dosage: 0.25/1 CAPSULE EVERY DAY.
     Route: 065
  6. AZUNOL [Concomitant]
     Route: 065
  7. MAGMITT [Concomitant]
     Dosage: 330 MILLIGRAMS,4 TABLETS AFTER MEAL (2 TABLETS AFTER SUPPER).
     Route: 065
  8. TOUGHMAC E [Concomitant]
     Dosage: 3 CAPSULES AFTER MEALS.
     Route: 065
  9. GASMOTIN [Concomitant]
     Route: 065
  10. BONALON 35MG [Concomitant]
     Route: 065
  11. TENORMIN [Suspect]
     Indication: HYPERTENSION
     Route: 048
     Dates: start: 20110901, end: 20111101
  12. OLMESARTAN MEDOXOMIL [Concomitant]
     Route: 065
  13. ADALAT [Concomitant]
     Route: 065

REACTIONS (1)
  - HEPATIC FUNCTION ABNORMAL [None]
